FAERS Safety Report 6820124-9 (Version None)
Quarter: 2010Q3

REPORT INFORMATION
  Report Type: 
  Country: None (occurrence: None)
  Receive Date: 20100707
  Receipt Date: 20080519
  Transmission Date: 20110219
  Serious: No
  Sender: FDA-Public Use
  Company Number: US-PFIZER INC-2008041537

PATIENT
  Age: 75 Year
  Sex: Female

DRUGS (2)
  1. ALPRAZOLAM [Suspect]
     Indication: ANXIETY
  2. FLUVOXAMINE [Interacting]
     Indication: DEPRESSION

REACTIONS (11)
  - ABDOMINAL DISCOMFORT [None]
  - AGITATION [None]
  - CONSTIPATION [None]
  - DECREASED APPETITE [None]
  - DRUG INTERACTION [None]
  - MEDICATION ERROR [None]
  - MUSCLE SPASMS [None]
  - NAUSEA [None]
  - NERVOUSNESS [None]
  - THERAPEUTIC RESPONSE DECREASED [None]
  - WITHDRAWAL SYNDROME [None]
